FAERS Safety Report 7543886-4 (Version None)
Quarter: 2011Q2

REPORT INFORMATION
  Report Type: 
  Country: None (occurrence: None)
  Receive Date: 20110613
  Receipt Date: 20110603
  Transmission Date: 20111010
  Serious: Yes (Hospitalization)
  Sender: FDA-Public Use
  Company Number: CA-ROCHE-780815

PATIENT
  Sex: Female
  Weight: 72 kg

DRUGS (9)
  1. PREDNISONE [Concomitant]
  2. ADVIL LIQUI-GELS [Concomitant]
  3. TYLENOL-500 [Concomitant]
  4. LAMOTRIGINE [Concomitant]
  5. CALCIUM CARBONATE [Concomitant]
  6. TOCILIZUMAB [Suspect]
     Indication: RHEUMATOID ARTHRITIS
     Route: 042
     Dates: start: 20101215, end: 20110309
  7. ACTONEL [Concomitant]
  8. FOLIC ACID [Concomitant]
  9. METHOTREXATE [Concomitant]

REACTIONS (4)
  - BILE OUTPUT INCREASED [None]
  - CHOLECYSTECTOMY [None]
  - BILIARY TRACT OPERATION [None]
  - HEPATECTOMY [None]
